FAERS Safety Report 4799713-1 (Version None)
Quarter: 2005Q4

REPORT INFORMATION
  Report Type: 
  Country: None (occurrence: None)
  Receive Date: 20051006
  Receipt Date: 20051006
  Transmission Date: 20060501
  Serious: Yes (Life-Threatening)
  Sender: FDA-Public Use
  Company Number: None

PATIENT
  Age: 71 Year
  Sex: Male
  Weight: 72 kg

DRUGS (4)
  1. AMPHOTERICIN B [Suspect]
     Indication: PNEUMONIA ASPERGILLUS
     Dosage: 72 MG IV QD
     Route: 042
     Dates: start: 20041110
  2. LEVOFLOXACIN [Concomitant]
  3. GENTAMICIN [Concomitant]
  4. HYDROXYZINE [Concomitant]

REACTIONS (6)
  - BLOOD PRESSURE DECREASED [None]
  - CHILLS [None]
  - DEPRESSED LEVEL OF CONSCIOUSNESS [None]
  - OXYGEN SATURATION DECREASED [None]
  - RASH [None]
  - RESPIRATION ABNORMAL [None]
